FAERS Safety Report 10274503 (Version 1)
Quarter: 2014Q3

REPORT INFORMATION
  Report Type: Spontaneous
  Country: US (occurrence: US)
  Receive Date: 20140702
  Receipt Date: 20140702
  Transmission Date: 20150326
  Serious: Yes (Other)
  Sender: FDA-Public Use
  Company Number: US-ASTRAZENECA-2014SE46612

PATIENT
  Age: 64 Year
  Sex: Male
  Weight: 81.6 kg

DRUGS (5)
  1. CRESTOR [Suspect]
     Active Substance: ROSUVASTATIN CALCIUM
     Indication: BLOOD TRIGLYCERIDES INCREASED
     Route: 048
     Dates: start: 20140524
  2. COUMADIN [Concomitant]
     Active Substance: WARFARIN SODIUM
  3. COUMADIN [Concomitant]
     Active Substance: WARFARIN SODIUM
     Dosage: DECREASED DOSE
  4. CRESTOR [Suspect]
     Active Substance: ROSUVASTATIN CALCIUM
     Indication: BLOOD CHOLESTEROL INCREASED
     Route: 048
     Dates: start: 20140524
  5. COUMADIN [Concomitant]
     Active Substance: WARFARIN SODIUM
     Dates: end: 20140624

REACTIONS (2)
  - Prothrombin time prolonged [Not Recovered/Not Resolved]
  - International normalised ratio increased [Not Recovered/Not Resolved]

NARRATIVE: CASE EVENT DATE: 201405
